FAERS Safety Report 25204327 (Version 3)
Quarter: 2025Q3

REPORT INFORMATION
  Report Type: Spontaneous
  Country: US (occurrence: US)
  Receive Date: 20250416
  Receipt Date: 20250725
  Transmission Date: 20251021
  Serious: Yes (Hospitalization)
  Sender: RADIUS PHARM
  Company Number: US-RADIUS HEALTH INC.-US-RADIUS-25046515

PATIENT
  Sex: Female

DRUGS (1)
  1. TYMLOS [Suspect]
     Active Substance: ABALOPARATIDE
     Indication: Product used for unknown indication
     Dosage: 80 MICROGRAM, QD
     Route: 058

REACTIONS (9)
  - Influenza [Unknown]
  - Peripheral swelling [Unknown]
  - Bone pain [Unknown]
  - Pain in extremity [Unknown]
  - Headache [Unknown]
  - Palpitations [Unknown]
  - Chest pain [Unknown]
  - Eczema [Unknown]
  - Intentional dose omission [Unknown]
